FAERS Safety Report 10633082 (Version 1)
Quarter: 2014Q4

REPORT INFORMATION
  Report Type: Spontaneous
  Country: US (occurrence: US)
  Receive Date: 20141205
  Receipt Date: 20141205
  Transmission Date: 20150529
  Serious: No
  Sender: FDA-Public Use
  Company Number: US-BRISTOL-MYERS SQUIBB COMPANY-21421581

PATIENT
  Age: 76 Year
  Sex: Female
  Weight: 76.64 kg

DRUGS (10)
  1. MULTIVITAMIN [Concomitant]
     Active Substance: VITAMINS
  2. TRIAMTERENE. [Concomitant]
     Active Substance: TRIAMTERENE
  3. ATORVASTATIN [Concomitant]
     Active Substance: ATORVASTATIN
  4. VITAMIN D [Concomitant]
     Active Substance: CHOLECALCIFEROL
  5. OMEPRAZOLE. [Concomitant]
     Active Substance: OMEPRAZOLE
  6. ELIQUIS [Suspect]
     Active Substance: APIXABAN
  7. METAMUCIL [Concomitant]
     Active Substance: PLANTAGO SEED
  8. VERAPAMIL [Concomitant]
     Active Substance: VERAPAMIL HYDROCHLORIDE
  9. FLECAINIDE [Concomitant]
     Active Substance: FLECAINIDE
  10. VITAMIN B12 [Concomitant]
     Active Substance: CYANOCOBALAMIN

REACTIONS (2)
  - Myalgia [Unknown]
  - Erythema [Unknown]
